FAERS Safety Report 9742635 (Version 3)
Quarter: 2015Q3

REPORT INFORMATION
  Report Type: Spontaneous
  Country: US (occurrence: US)
  Receive Date: 20131210
  Receipt Date: 20150804
  Transmission Date: 20151125
  Serious: Yes (Other)
  Sender: FDA-Public Use
  Company Number: US-GILEAD-2009-0024490

PATIENT
  Age: 79 Year
  Sex: Male
  Weight: 93.89 kg

DRUGS (18)
  1. CARTEOLOL HCL [Concomitant]
  2. ALLOPURINOL. [Concomitant]
     Active Substance: ALLOPURINOL
  3. PRINIVIL [Concomitant]
     Active Substance: LISINOPRIL
  4. DARVON-N [Concomitant]
     Active Substance: PROPOXYPHENE NAPSYLATE
  5. LETAIRIS [Suspect]
     Active Substance: AMBRISENTAN
     Indication: PULMONARY ARTERIAL HYPERTENSION
     Route: 048
     Dates: start: 20090910, end: 20091029
  6. IMDUR [Concomitant]
     Active Substance: ISOSORBIDE MONONITRATE
  7. BUMEX [Concomitant]
     Active Substance: BUMETANIDE
  8. COREG [Concomitant]
     Active Substance: CARVEDILOL
  9. LANOXIN [Concomitant]
     Active Substance: DIGOXIN
  10. TYLENOL [Concomitant]
     Active Substance: ACETAMINOPHEN
  11. LANTUS [Concomitant]
     Active Substance: INSULIN GLARGINE
  12. KLOR-CON [Concomitant]
     Active Substance: POTASSIUM CHLORIDE
  13. VITAMIN D [Concomitant]
     Active Substance: CHOLECALCIFEROL
  14. COUMADIN [Concomitant]
     Active Substance: WARFARIN SODIUM
  15. METOLAZONE. [Concomitant]
     Active Substance: METOLAZONE
  16. XALATAN [Concomitant]
     Active Substance: LATANOPROST
  17. SULFACETAMIDE. [Concomitant]
     Active Substance: SULFACETAMIDE
  18. EPLERENONE. [Concomitant]
     Active Substance: EPLERENONE

REACTIONS (2)
  - Oedema [Unknown]
  - Drug ineffective [Unknown]
